FAERS Safety Report 8760727 (Version 1)
Quarter: 2012Q4

REPORT INFORMATION
  Report Type: 
  Country: JP (occurrence: JP)
  Receive Date: 20120829
  Receipt Date: 20120829
  Transmission Date: 20130627
  Serious: Yes (Death)
  Sender: FDA-Public Use
  Company Number: JP-ASTELLAS-2011JP007908

PATIENT
  Age: 71 Year
  Sex: Female
  Weight: 61 kg

DRUGS (11)
  1. PROGRAF [Suspect]
     Indication: RHEUMATOID ARTHRITIS
     Dosage: 1 mg, UID/QD
     Route: 048
     Dates: start: 20070825
  2. METOLATE [Concomitant]
     Indication: RHEUMATOID ARTHRITIS
     Dosage: 2 mg, bid
     Route: 048
     Dates: start: 20070911, end: 20081225
  3. METOLATE [Concomitant]
     Dosage: 6 mg, UID/QD
     Route: 048
     Dates: start: 20081225, end: 20090521
  4. METOLATE [Concomitant]
     Dosage: 8 mg, UID/QD
     Route: 048
     Dates: start: 20090521, end: 20100323
  5. METHOTREXATE [Concomitant]
     Indication: RHEUMATOID ARTHRITIS
     Dosage: 8 mg, UID/QD
     Route: 048
     Dates: start: 20100323, end: 20110317
  6. METHOTREXATE [Concomitant]
     Dosage: 10 mg, UID/QD
     Route: 048
     Dates: start: 20110317
  7. PREDONINE [Concomitant]
     Indication: RHEUMATOID ARTHRITIS
     Dosage: 5 mg, UID/QD
     Route: 048
     Dates: start: 20070911
  8. PREDONINE [Concomitant]
     Dosage: 4.5 mg, UID/QD
     Route: 048
     Dates: start: 20110831
  9. PREDONINE [Concomitant]
     Dosage: 4 mg, UID/QD
     Route: 048
     Dates: start: 20110906
  10. FOLIAMIN [Concomitant]
     Indication: FOLATE DEFICIENCY
     Dosage: 5 mg, UID/QD
     Route: 048
     Dates: start: 20081120
  11. MELOXICAM [Concomitant]
     Indication: RHEUMATOID ARTHRITIS
     Dosage: 10 mg, UID/QD
     Route: 048
     Dates: start: 20110607

REACTIONS (3)
  - Intentional drug misuse [Unknown]
  - Extranodal NK/T-cell lymphoma, nasal type [Fatal]
  - Drug-induced liver injury [Fatal]
